FAERS Safety Report 17152502 (Version 2)
Quarter: 2020Q1

REPORT INFORMATION
  Report Type: Spontaneous
  Country: PL (occurrence: PL)
  Receive Date: 20191213
  Receipt Date: 20200131
  Transmission Date: 20200409
  Serious: Yes (Hospitalization)
  Sender: FDA-Public Use
  Company Number: PL-ASTRAZENECA-2019SF76002

PATIENT
  Age: 30 Year
  Sex: Male

DRUGS (2)
  1. QUETIAPINE. [Suspect]
     Active Substance: QUETIAPINE
     Indication: SCHIZOPHRENIA
     Route: 048
  2. ABILIFY MAINTENA [Suspect]
     Active Substance: ARIPIPRAZOLE
     Indication: SCHIZOPHRENIA
     Route: 030
     Dates: start: 20191105

REACTIONS (3)
  - Adverse drug reaction [Not Recovered/Not Resolved]
  - Disease recurrence [Not Recovered/Not Resolved]
  - Self-medication [Unknown]

NARRATIVE: CASE EVENT DATE: 20191105
